FAERS Safety Report 11996021 (Version 1)
Quarter: 2016Q1

REPORT INFORMATION
  Report Type: Spontaneous
  Country: FR (occurrence: FR)
  Receive Date: 20160203
  Receipt Date: 20160203
  Transmission Date: 20160526
  Serious: Yes (Hospitalization)
  Sender: FDA-Public Use
  Company Number: FR-SA-2016SA015434

PATIENT
  Age: 85 Year
  Sex: Female

DRUGS (5)
  1. BIPROFENID [Suspect]
     Active Substance: KETOPROFEN
     Indication: BONE PAIN
     Route: 048
     Dates: start: 20151128, end: 20151201
  2. PREVISCAN [Concomitant]
     Active Substance: FLUINDIONE
     Indication: ARRHYTHMIA
     Dosage: 1 TABLET AND 3/4 TABLET EVERY OTHER DAY
     Route: 048
     Dates: start: 201504, end: 20151201
  3. EBIXA [Concomitant]
     Active Substance: MEMANTINE HYDROCHLORIDE
     Route: 048
  4. BISOPROLOL [Concomitant]
     Active Substance: BISOPROLOL
     Route: 048
  5. LASILIX [Suspect]
     Active Substance: FUROSEMIDE
     Route: 048
     Dates: end: 201512

REACTIONS (1)
  - Acute kidney injury [Unknown]

NARRATIVE: CASE EVENT DATE: 20151201
